FAERS Safety Report 5987151-5 (Version None)
Quarter: 2008Q4

REPORT INFORMATION
  Report Type: 
  Country: None (occurrence: None)
  Receive Date: 20081209
  Receipt Date: 20081119
  Transmission Date: 20090506
  Serious: Yes (Other)
  Sender: FDA-Public Use
  Company Number: US-PFIZER INC-2008150208

PATIENT
  Sex: Male

DRUGS (2)
  1. TIKOSYN [Suspect]
  2. COUMADIN [Concomitant]

REACTIONS (2)
  - HAEMATURIA [None]
  - RENAL CELL CARCINOMA [None]
